FAERS Safety Report 11717995 (Version 1)
Quarter: 2015Q4

REPORT INFORMATION
  Report Type: Report from Study
  Country: US (occurrence: US)
  Receive Date: 20151110
  Receipt Date: 20151110
  Transmission Date: 20160304
  Serious: Yes (Other)
  Sender: FDA-Public Use
  Company Number: US-AMGEN-USASL2015117359

PATIENT
  Age: 82 Year
  Sex: Female

DRUGS (1)
  1. PROLIA [Suspect]
     Active Substance: DENOSUMAB
     Indication: OSTEOPOROSIS
     Dosage: UNK
     Route: 065
     Dates: start: 201411

REACTIONS (4)
  - Arthralgia [Not Recovered/Not Resolved]
  - Pulmonary artery stenosis [Unknown]
  - Arthropathy [Unknown]
  - Steroid therapy [Unknown]

NARRATIVE: CASE EVENT DATE: 201502
